FAERS Safety Report 8888335 (Version 1)
Quarter: 2012Q4

REPORT INFORMATION
  Report Type: 
  Country: US (occurrence: US)
  Receive Date: 20121106
  Receipt Date: 20121106
  Transmission Date: 20130627
  Serious: No
  Sender: FDA-Public Use
  Company Number: US-PFIZER INC-2012273459

PATIENT
  Age: 69 Year
  Sex: Male
  Weight: 77.1 kg

DRUGS (2)
  1. DETROL LA [Suspect]
     Indication: MICTURITION DISORDER
     Dosage: 4 mg, daily
     Dates: start: 201210
  2. FLOMAX [Concomitant]
     Indication: MICTURITION DISORDER
     Dosage: UNK

REACTIONS (1)
  - Drug ineffective [Unknown]
